FAERS Safety Report 10441223 (Version 1)
Quarter: 2014Q3

REPORT INFORMATION
  Report Type: Spontaneous
  Country: HU (occurrence: HU)
  Receive Date: 20140909
  Receipt Date: 20140909
  Transmission Date: 20150326
  Serious: Yes (Hospitalization)
  Sender: FDA-Public Use
  Company Number: PHHY2013HU162235

PATIENT
  Age: 87 Year
  Sex: Female

DRUGS (8)
  1. SYNCUMAR [Interacting]
     Active Substance: ACENOCOUMAROL
     Indication: ATRIAL FIBRILLATION
     Dosage: ALTERNATE-DOSAGING REG: DAY ONE 1 MG AND DAY TWO 1.5 MG
     Route: 048
     Dates: start: 200708
  2. DIGOXIN. [Concomitant]
     Active Substance: DIGOXIN
     Indication: ATRIAL FIBRILLATION
     Route: 048
  3. AUGMENTIN DUO [Interacting]
     Active Substance: AMOXICILLIN\CLAVULANATE POTASSIUM
     Indication: PAIN IN EXTREMITY
     Route: 048
     Dates: start: 20131028, end: 20131103
  4. RAMACE [Concomitant]
     Indication: HYPERTENSION
     Route: 048
  5. DETRALEX [Interacting]
     Active Substance: DIOSMIN\HESPERIDIN
     Indication: PAIN IN EXTREMITY
     Route: 048
     Dates: start: 20131028, end: 20131103
  6. ACETYLSALICYLIC ACID [Concomitant]
     Active Substance: ASPIRIN
     Indication: CORONARY ARTERY STENOSIS
     Route: 048
  7. MODUXIN MR [Concomitant]
     Indication: ANGINA PECTORIS
     Route: 048
  8. DICLAC [Suspect]
     Active Substance: DICLOFENAC POTASSIUM
     Indication: PAIN IN EXTREMITY
     Route: 048
     Dates: start: 20131028, end: 20131103

REACTIONS (2)
  - International normalised ratio increased [Recovered/Resolved]
  - Potentiating drug interaction [Recovered/Resolved]

NARRATIVE: CASE EVENT DATE: 20131104
